FAERS Safety Report 13699878 (Version 1)
Quarter: 2017Q2

REPORT INFORMATION
  Report Type: Spontaneous
  Country: US (occurrence: US)
  Receive Date: 20170629
  Receipt Date: 20170629
  Transmission Date: 20170830
  Serious: Yes (Hospitalization, Other)
  Sender: FDA-Public Use
  Company Number: US-AMGEN-USASP2017094511

PATIENT
  Age: 43 Year
  Sex: Male
  Weight: 89.7 kg

DRUGS (40)
  1. ACETAMINOPHEN. [Concomitant]
     Active Substance: ACETAMINOPHEN
     Dosage: 500 MG, Q4H
  2. ACYCLOVIR. [Concomitant]
     Active Substance: ACYCLOVIR
     Dosage: 800 MG, BID
     Route: 048
  3. CHOLECALCIFEROL [Concomitant]
     Active Substance: CHOLECALCIFEROL
     Dosage: 2000 UNIT, QD
     Route: 048
  4. HEPARIN [Concomitant]
     Active Substance: HEPARIN SODIUM
     Dosage: 1000U/ML
     Route: 042
  5. SALINE [Concomitant]
     Active Substance: SODIUM CHLORIDE
     Dosage: 10 ML, UNK
  6. POTASSIUM CHLORIDE. [Concomitant]
     Active Substance: POTASSIUM CHLORIDE
     Dosage: 40 MEQ, UNK
  7. SWEEN [Concomitant]
  8. OXYCODONE [Concomitant]
     Active Substance: OXYCODONE
  9. ZOFRAN [Concomitant]
     Active Substance: ONDANSETRON HYDROCHLORIDE
     Dosage: 8 MG, Q8H
     Route: 048
  10. CYTARABIN [Concomitant]
     Active Substance: CYTARABINE
  11. MITOXANTRONE [Concomitant]
     Active Substance: MITOXANTRONE HYDROCHLORIDE
  12. ZOLPIDEM [Concomitant]
     Active Substance: ZOLPIDEM\ZOLPIDEM TARTRATE
     Dosage: 5 MG, QD
     Route: 048
  13. EPIPEN [Concomitant]
     Active Substance: EPINEPHRINE
     Dosage: 0.3 MG/0.3 ML, UNK
  14. PENTAMIDINE [Concomitant]
     Active Substance: PENTAMIDINE
     Dosage: 300 MG, Q4H
  15. DEXTROSE. [Concomitant]
     Active Substance: DEXTROSE
     Dosage: 50 %, UNK
     Route: 042
  16. LEVAQUIN [Concomitant]
     Active Substance: LEVOFLOXACIN
     Dosage: 750 MG (Q24H), UNK
     Route: 048
  17. MAGNESIUM SULFATE. [Concomitant]
     Active Substance: MAGNESIUM SULFATE
     Dosage: 4 G, AS NECESSARY
  18. SODIUM PHOSPHATE [Concomitant]
     Active Substance: SODIUM PHOSPHATE
  19. MORPHINE [Concomitant]
     Active Substance: MORPHINE
     Dosage: 4 MG, Q12H
     Route: 048
  20. PROTONIX [Concomitant]
     Active Substance: PANTOPRAZOLE SODIUM
  21. METHOTREXATE. [Concomitant]
     Active Substance: METHOTREXATE
  22. CENTRUM SILVER [Concomitant]
     Active Substance: MINERALS\VITAMINS
     Dosage: UNK UNK, QD
     Route: 048
  23. LANTUS [Concomitant]
     Active Substance: INSULIN GLARGINE
     Dosage: 12 UNIT, QD
     Route: 058
  24. OCEAN SALINE NASAL SPRAY [Concomitant]
     Active Substance: SODIUM CHLORIDE
     Dosage: 0.65 %, UNK
  25. OFIRMEV [Concomitant]
     Active Substance: ACETAMINOPHEN
     Dosage: 500 MG, Q4H
  26. ENOXAPARIN [Concomitant]
     Active Substance: ENOXAPARIN
     Dosage: 120 MG/0.8 ML, UNK
     Route: 058
  27. BLINCYTO [Suspect]
     Active Substance: BLINATUMOMAB
     Indication: ACUTE LYMPHOCYTIC LEUKAEMIA RECURRENT
     Dosage: UNK
     Route: 065
     Dates: start: 20170321
  28. BIOTENE NOS [Concomitant]
     Active Substance: CETYLPYRIDINIUM CHLORIDE OR SODIUM FLUORIDE OR SODIUM MONOFLUOROPHOSPHATE OR GLUCOSE OXIDASE\LACTOFERRIN\LACTOPEROXIDASE BOVINE\LYSOZYME
     Dosage: 15 ML, UNK
  29. SALINE [Concomitant]
     Active Substance: SODIUM CHLORIDE
     Dosage: 20 ML, UNK
  30. LOVENOX [Concomitant]
     Active Substance: ENOXAPARIN SODIUM
     Dosage: 40 MG, QD
     Route: 058
  31. PROCHLORPERAZINE. [Concomitant]
     Active Substance: PROCHLORPERAZINE
     Dosage: 5 MG, Q4H
  32. VITAMIN D3 [Concomitant]
     Active Substance: CHOLECALCIFEROL
     Dosage: 2000 UNIT, UNK
  33. ALTEPLASE [Concomitant]
     Active Substance: ALTEPLASE
     Dosage: 2 MG, UNK
     Route: 042
  34. BENADRYL [Concomitant]
     Active Substance: DIPHENHYDRAMINE HYDROCHLORIDE
     Dosage: 25 MG, Q4H
     Route: 048
  35. DOCUSATE [Concomitant]
     Active Substance: DOCUSATE
     Dosage: 50 MG, BID
     Route: 048
  36. HUMALOG [Concomitant]
     Active Substance: INSULIN LISPRO
     Dosage: 15 UNIT, AS NECESSARY
  37. PANTOPRAZOLE [Concomitant]
     Active Substance: PANTOPRAZOLE
     Dosage: 40 MG, QD
     Route: 048
  38. OSCAL [Concomitant]
     Active Substance: CALCIUM CARBONATE
     Dosage: UNK UNK, BID
     Route: 048
  39. VITRUM [Concomitant]
     Dosage: UNK UNK, QD
     Route: 048
  40. ZYRTEC [Concomitant]
     Active Substance: CETIRIZINE HYDROCHLORIDE
     Dosage: 10 MG, QD
     Route: 048

REACTIONS (8)
  - Back pain [Not Recovered/Not Resolved]
  - Pulmonary embolism [Unknown]
  - Upper respiratory tract infection [Unknown]
  - Escherichia bacteraemia [Unknown]
  - Neuropathy peripheral [Unknown]
  - Depression [Unknown]
  - Subgaleal haematoma [Unknown]
  - Acute lymphocytic leukaemia recurrent [Unknown]

NARRATIVE: CASE EVENT DATE: 20170524
